FAERS Safety Report 15270703 (Version 1)
Quarter: 2018Q3

REPORT INFORMATION
  Report Type: Spontaneous
  Country: US (occurrence: US)
  Receive Date: 20180813
  Receipt Date: 20180813
  Transmission Date: 20181010
  Serious: Yes (Other)
  Sender: FDA-Public Use
  Company Number: US-SA-2018SA134593

PATIENT
  Age: 35 Year
  Sex: Female
  Weight: 56 kg

DRUGS (6)
  1. HERCEPTIN [Concomitant]
     Active Substance: TRASTUZUMAB
  2. XANAX [Concomitant]
     Active Substance: ALPRAZOLAM
  3. TAXOTERE [Suspect]
     Active Substance: DOCETAXEL
     Indication: BREAST CANCER FEMALE
     Dosage: 155 MG,Q3W
     Route: 042
     Dates: start: 20140527, end: 20140527
  4. PARAPLATIN [Concomitant]
     Active Substance: CARBOPLATIN
  5. PERTUZUMAB. [Concomitant]
     Active Substance: PERTUZUMAB
  6. TAXOTERE [Suspect]
     Active Substance: DOCETAXEL
     Dosage: 155 MG,Q3W
     Route: 042
     Dates: start: 20140722, end: 20140722

REACTIONS (2)
  - Alopecia [Recovering/Resolving]
  - Psychological trauma [Unknown]

NARRATIVE: CASE EVENT DATE: 201406
